FAERS Safety Report 8275727-4 (Version None)
Quarter: 2012Q2

REPORT INFORMATION
  Report Type: 
  Country: None (occurrence: None)
  Receive Date: 20120410
  Receipt Date: 20120410
  Transmission Date: 20120825
  Serious: No
  Sender: FDA-Public Use
  Company Number: None

PATIENT

DRUGS (1)
  1. MORPHINE [Suspect]
     Dosage: PHARMEDIUM SERVICES, LLC

REACTIONS (1)
  - INTERCEPTED DRUG ADMINISTRATION ERROR [None]
